FAERS Safety Report 7727369-4 (Version None)
Quarter: 2011Q3

REPORT INFORMATION
  Report Type: 
  Country: None (occurrence: None)
  Receive Date: 20110902
  Receipt Date: 20110829
  Transmission Date: 20111222
  Serious: Yes (Death, Other)
  Sender: FDA-Public Use
  Company Number: PHHY2011JP76840

PATIENT
  Age: 52 Year
  Sex: Male

DRUGS (3)
  1. CARBOPLATIN [Suspect]
     Indication: LUNG ADENOCARCINOMA
     Route: 042
  2. PACLITAXEL [Suspect]
     Indication: LUNG ADENOCARCINOMA
     Dosage: 200 MG/M2, UNK
  3. BEVACIZUMAB [Suspect]
     Indication: LUNG ADENOCARCINOMA
     Dosage: 15 MG/KG, UNK

REACTIONS (8)
  - HYPOXIA [None]
  - CHILLS [None]
  - CARDIO-RESPIRATORY ARREST [None]
  - HYPERTHERMIA [None]
  - PULMONARY HAEMORRHAGE [None]
  - ANAEMIA [None]
  - LOSS OF CONSCIOUSNESS [None]
  - BLOOD PRESSURE DECREASED [None]
